FAERS Safety Report 21658905 (Version 3)
Quarter: 2024Q1

REPORT INFORMATION
  Report Type: Spontaneous
  Country: US (occurrence: US)
  Receive Date: 20221129
  Receipt Date: 20240222
  Transmission Date: 20240410
  Serious: No
  Sender: FDA-Public Use
  Company Number: US-ELI_LILLY_AND_COMPANY-US202211010950

PATIENT
  Age: 41 Year
  Sex: Male

DRUGS (12)
  1. MOUNJARO [Suspect]
     Active Substance: TIRZEPATIDE
     Indication: Product used for unknown indication
     Dosage: 15 MG, UNKNOWN
     Route: 058
     Dates: start: 202205
  2. MOUNJARO [Suspect]
     Active Substance: TIRZEPATIDE
     Indication: Product used for unknown indication
     Dosage: 15 MG, UNKNOWN
     Route: 058
     Dates: start: 202205
  3. MOUNJARO [Suspect]
     Active Substance: TIRZEPATIDE
     Indication: Product used for unknown indication
     Dosage: 15 MG, UNKNOWN
     Route: 058
     Dates: start: 202205
  4. MOUNJARO [Suspect]
     Active Substance: TIRZEPATIDE
     Indication: Product used for unknown indication
     Dosage: 15 MG, UNKNOWN
     Route: 058
     Dates: start: 202205
  5. MOUNJARO [Suspect]
     Active Substance: TIRZEPATIDE
     Indication: Product used for unknown indication
     Dosage: 15 MG, UNKNOWN
     Route: 058
     Dates: start: 202205
  6. MOUNJARO [Suspect]
     Active Substance: TIRZEPATIDE
     Indication: Product used for unknown indication
     Dosage: 15 MG, UNKNOWN
     Route: 058
     Dates: start: 202205
  7. MOUNJARO [Suspect]
     Active Substance: TIRZEPATIDE
     Dosage: 15 UNK
     Route: 058
  8. MOUNJARO [Suspect]
     Active Substance: TIRZEPATIDE
     Dosage: 15 UNK
     Route: 058
  9. MOUNJARO [Suspect]
     Active Substance: TIRZEPATIDE
     Dosage: 15 UNK
     Route: 058
  10. MOUNJARO [Suspect]
     Active Substance: TIRZEPATIDE
     Dosage: 15 UNK
     Route: 058
  11. MOUNJARO [Suspect]
     Active Substance: TIRZEPATIDE
     Dosage: 15 UNK
     Route: 058
  12. MOUNJARO [Suspect]
     Active Substance: TIRZEPATIDE
     Dosage: 15 UNK
     Route: 058

REACTIONS (1)
  - Incorrect dose administered [Unknown]
